FAERS Safety Report 9258937 (Version 2)
Quarter: 2013Q3

REPORT INFORMATION
  Report Type: Report from Study
  Country: JP (occurrence: JP)
  Receive Date: 20130426
  Receipt Date: 20130904
  Transmission Date: 20140515
  Serious: Yes (Death, Hospitalization)
  Sender: FDA-Public Use
  Company Number: JP-GLAXOSMITHKLINE-B0886326A

PATIENT
  Age: 67 Year
  Sex: Female
  Weight: 61 kg

DRUGS (5)
  1. TYKERB [Suspect]
     Indication: BREAST CANCER
     Route: 048
     Dates: start: 20100310, end: 20100904
  2. TYKERB [Suspect]
     Indication: BREAST CANCER
     Route: 048
     Dates: start: 20100922, end: 20101110
  3. XELODA [Suspect]
     Indication: BREAST CANCER
     Route: 048
     Dates: start: 20100310, end: 20100531
  4. RINESTERON [Concomitant]
     Indication: BRAIN OEDEMA
     Route: 048
     Dates: start: 20090209, end: 20101122
  5. ZANTAC [Concomitant]
     Indication: BRAIN OEDEMA
     Route: 048
     Dates: start: 20090209, end: 20101122

REACTIONS (8)
  - Urinary tract infection [Not Recovered/Not Resolved]
  - Pyelonephritis [Recovered/Resolved]
  - Infection [Fatal]
  - Duodenal ulcer [Recovering/Resolving]
  - Sinus tachycardia [Recovered/Resolved]
  - Palmar-plantar erythrodysaesthesia syndrome [Recovered/Resolved]
  - Malaise [Recovering/Resolving]
  - Rash [Recovered/Resolved]
